FAERS Safety Report 7099868-2 (Version None)
Quarter: 2010Q4

REPORT INFORMATION
  Report Type: 
  Country: None (occurrence: None)
  Receive Date: 20101112
  Receipt Date: 20101109
  Transmission Date: 20110411
  Serious: Yes (Death, Hospitalization, Congenital Anomaly, Other)
  Sender: FDA-Public Use
  Company Number: US-PFIZER INC-2010128148

PATIENT
  Sex: Female
  Weight: 2.698 kg

DRUGS (6)
  1. ZOLOFT [Suspect]
     Indication: DEPRESSION
     Dosage: 50 MG, UNK
     Route: 064
     Dates: start: 20020215, end: 20030101
  2. ZOLOFT [Suspect]
     Indication: ANXIETY
     Dosage: 100 MG, UNK
     Route: 064
     Dates: start: 20020315
  3. ZOLOFT [Suspect]
     Dosage: 150 MG, UNK
     Route: 064
     Dates: start: 20020716
  4. ZITHROMAX [Concomitant]
     Indication: SINOBRONCHITIS
     Dosage: UNK
     Route: 064
     Dates: start: 20030121
  5. ROBITUSSIN-DAC [Concomitant]
     Indication: SINOBRONCHITIS
     Dosage: UNK
     Route: 064
     Dates: start: 20030121
  6. ALLEGRA D 24 HOUR [Concomitant]
     Dosage: UNK
     Route: 064
     Dates: start: 20030724

REACTIONS (10)
  - ANOMALOUS PULMONARY VENOUS CONNECTION [None]
  - ATRIAL SEPTAL DEFECT [None]
  - CARDIO-RESPIRATORY ARREST [None]
  - DRUG EXPOSURE DURING PREGNANCY [None]
  - GENITALIA EXTERNAL AMBIGUOUS [None]
  - LIMB REDUCTION DEFECT [None]
  - LOW SET EARS [None]
  - NEONATAL RESPIRATORY DISTRESS SYNDROME [None]
  - PULMONARY HYPOPLASIA [None]
  - VENTRICULAR SEPTAL DEFECT [None]
